FAERS Safety Report 9775858 (Version 1)
Quarter: 2013Q4

REPORT INFORMATION
  Report Type: Spontaneous
  Country: GB (occurrence: GB)
  Receive Date: 20131220
  Receipt Date: 20131220
  Transmission Date: 20140711
  Serious: Yes (Other)
  Sender: FDA-Public Use
  Company Number: GB-WATSON-2013-23165

PATIENT
  Age: 56 Year
  Sex: Female

DRUGS (3)
  1. AMLODIPINE (UNKNOWN) [Suspect]
     Indication: HYPERTENSION
     Dosage: 5 MG, DAILY
     Route: 048
     Dates: start: 20131110, end: 20131124
  2. LOSARTAN [Concomitant]
     Indication: PRODUCT USED FOR UNKNOWN INDICATION
     Dosage: UNK
     Route: 065
  3. BENDROFLUMETHIAZIDE [Concomitant]
     Indication: PRODUCT USED FOR UNKNOWN INDICATION
     Dosage: UNK
     Route: 065

REACTIONS (3)
  - Abasia [Recovering/Resolving]
  - Arthralgia [Recovering/Resolving]
  - Back pain [Recovering/Resolving]
